FAERS Safety Report 16864809 (Version 1)
Quarter: 2019Q3

REPORT INFORMATION
  Report Type: Report from Study
  Country: CA (occurrence: CA)
  Receive Date: 20190929
  Receipt Date: 20190929
  Transmission Date: 20191005
  Serious: Yes (Other)
  Sender: FDA-Public Use
  Company Number: PHHY2011CA128945

PATIENT
  Age: 54 Year
  Sex: Female
  Weight: 49.43 kg

DRUGS (14)
  1. SANDOSTATIN LAR DEPOT [Suspect]
     Active Substance: OCTREOTIDE ACETATE
     Indication: MEDULLARY THYROID CANCER
     Dosage: 30 MG, QMO (EVERY 4 WEEKS)
     Route: 030
     Dates: start: 20040713, end: 20070306
  2. ULTIMATE PLUS [Concomitant]
     Indication: PRODUCT USED FOR UNKNOWN INDICATION
     Dosage: UNK
     Route: 065
  3. CALCIUM [Concomitant]
     Active Substance: CALCIUM
     Indication: PRODUCT USED FOR UNKNOWN INDICATION
     Dosage: UNK UNK, BID
     Route: 065
  4. SANDOSTATIN LAR DEPOT [Suspect]
     Active Substance: OCTREOTIDE ACETATE
     Dosage: 30 MG, QMO
     Route: 030
     Dates: start: 20110209
  5. SANDOSTATIN LAR DEPOT [Suspect]
     Active Substance: OCTREOTIDE ACETATE
     Dosage: 30 MG, TIW (EVERY 3 WEEKS)
     Route: 030
     Dates: start: 20110610
  6. SANDOSTATIN [Suspect]
     Active Substance: OCTREOTIDE ACETATE
     Indication: MEDULLARY THYROID CANCER
     Dosage: 50 UG, UNK
     Route: 058
  7. SANDOSTATIN LAR DEPOT [Suspect]
     Active Substance: OCTREOTIDE ACETATE
     Dosage: 20 MG, QMO (EVERY 4 WEEKS)
     Route: 030
     Dates: start: 20110124
  8. SANDOSTATIN LAR DEPOT [Suspect]
     Active Substance: OCTREOTIDE ACETATE
     Dosage: 30 MG, QMO (EVERY 4 WEEKS)
     Route: 030
     Dates: start: 20130709
  9. CELEBREX [Concomitant]
     Active Substance: CELECOXIB
     Indication: PRODUCT USED FOR UNKNOWN INDICATION
     Dosage: QD (SOMETIMES BID)
     Route: 048
  10. SANDOSTATIN [Suspect]
     Active Substance: OCTREOTIDE ACETATE
     Dosage: 100 UG, BID
     Route: 058
     Dates: end: 20120223
  11. CAPRELSA [Concomitant]
     Active Substance: VANDETANIB
     Indication: PRODUCT USED FOR UNKNOWN INDICATION
     Dosage: UNK
     Route: 065
  12. SANDOSTATIN LAR DEPOT [Suspect]
     Active Substance: OCTREOTIDE ACETATE
     Dosage: UNK
     Route: 030
     Dates: start: 201612
  13. ROCALTROL [Concomitant]
     Active Substance: CALCITRIOL
     Indication: PRODUCT USED FOR UNKNOWN INDICATION
     Dosage: 25 MG, QD
     Route: 048
  14. ELTROXIN [Concomitant]
     Active Substance: LEVOTHYROXINE
     Indication: PRODUCT USED FOR UNKNOWN INDICATION
     Dosage: 0.15 MG, QD
     Route: 048

REACTIONS (71)
  - Blood pressure decreased [Unknown]
  - Erythema [Unknown]
  - Vision blurred [Unknown]
  - Myalgia [Recovering/Resolving]
  - Limb discomfort [Unknown]
  - Diarrhoea [Not Recovered/Not Resolved]
  - Injection site discomfort [Unknown]
  - Inappropriate schedule of product administration [Unknown]
  - Rectal haemorrhage [Recovering/Resolving]
  - Lymph node pain [Unknown]
  - Muscular weakness [Unknown]
  - Joint swelling [Unknown]
  - Gastrointestinal bacterial overgrowth [Unknown]
  - Bladder pain [Unknown]
  - Flushing [Unknown]
  - Orthostatic hypotension [Unknown]
  - Dysstasia [Unknown]
  - Sciatic nerve injury [Unknown]
  - Pain in extremity [Unknown]
  - Dizziness [Unknown]
  - Abdominal distension [Recovering/Resolving]
  - Pain [Unknown]
  - Back pain [Unknown]
  - Dermatitis acneiform [Unknown]
  - Osteoarthritis [Unknown]
  - Upper respiratory tract infection [Recovering/Resolving]
  - Flank pain [Unknown]
  - Wrong technique in product usage process [Unknown]
  - Anorectal discomfort [Recovering/Resolving]
  - Dry eye [Unknown]
  - Hypoaesthesia [Unknown]
  - Frustration tolerance decreased [Unknown]
  - Crying [Unknown]
  - Pruritus [Unknown]
  - Rash [Not Recovered/Not Resolved]
  - Weight decreased [Unknown]
  - Depressed mood [Unknown]
  - Acne [Unknown]
  - Arthritis [Unknown]
  - Petechiae [Unknown]
  - Paraesthesia [Recovered/Resolved]
  - Sensory disturbance [Unknown]
  - Musculoskeletal discomfort [Unknown]
  - Nausea [Unknown]
  - Alopecia [Unknown]
  - Asthenia [Unknown]
  - Fatigue [Unknown]
  - Injection site mass [Unknown]
  - Needle issue [Unknown]
  - Cough [Recovering/Resolving]
  - Musculoskeletal chest pain [Recovering/Resolving]
  - Dysphonia [Not Recovered/Not Resolved]
  - Injection site erythema [Unknown]
  - Injection site pain [Unknown]
  - Haemorrhoids [Unknown]
  - Haematoma [Unknown]
  - Nervousness [Recovering/Resolving]
  - Lymphadenopathy [Unknown]
  - Urinary tract infection [Not Recovered/Not Resolved]
  - Abdominal tenderness [Recovering/Resolving]
  - Abdominal pain upper [Unknown]
  - Underdose [Unknown]
  - Oral discomfort [Unknown]
  - Skin discolouration [Unknown]
  - Musculoskeletal pain [Recovering/Resolving]
  - Feeling abnormal [Unknown]
  - Fall [Unknown]
  - Injection site pain [Recovered/Resolved]
  - Injection site mass [Recovered/Resolved]
  - Headache [Unknown]
  - Product use in unapproved indication [Unknown]

NARRATIVE: CASE EVENT DATE: 201103
